FAERS Safety Report 13095462 (Version 1)
Quarter: 2017Q1

REPORT INFORMATION
  Report Type: Spontaneous
  Country: US (occurrence: US)
  Receive Date: 20170108
  Receipt Date: 20170108
  Transmission Date: 20170428
  Serious: No
  Sender: FDA-Public Use
  Company Number: US-GRANULES INDIA LIMITED-1061724

PATIENT
  Age: 75 Year
  Sex: Female
  Weight: 54.55 kg

DRUGS (8)
  1. LIPITOR [Concomitant]
     Active Substance: ATORVASTATIN CALCIUM
     Route: 048
     Dates: start: 20120715
  2. ONDANSETRON [Concomitant]
     Active Substance: ONDANSETRON
  3. MULTI VITAMIN INFUSION [Concomitant]
     Active Substance: .ALPHA.-TOCOPHEROL\.ALPHA.-TOCOPHEROL ACETATE, DL-\ASCORBIC ACID\BIOTIN\CYANOCOBALAMIN\DEXPANTHENOL\ERGOCALCIFEROL\FOLIC ACID\NIACINAMIDE\PYRIDOXINE HYDROCHLORIDE\RETINOL\RIBOFLAVIN 5^-PHOSPHATE SODIUM\THIAMINE
  4. METFORMIN HYDROCHLORIDE. [Suspect]
     Active Substance: METFORMIN HYDROCHLORIDE
     Indication: DIABETES MELLITUS
     Route: 048
     Dates: start: 20080712
  5. FISH OIL [Concomitant]
     Active Substance: FISH OIL
     Route: 048
  6. TOPROL XL [Concomitant]
     Active Substance: METOPROLOL SUCCINATE
  7. PLAVIX [Concomitant]
     Active Substance: CLOPIDOGREL BISULFATE
     Route: 048
  8. ASPIRIN. [Concomitant]
     Active Substance: ASPIRIN
     Route: 048

REACTIONS (1)
  - Drug ineffective [Unknown]
